FAERS Safety Report 5275712-0 (Version None)
Quarter: 2007Q1

REPORT INFORMATION
  Report Type: 
  Country: None (occurrence: None)
  Receive Date: 20061213
  Receipt Date: 20040329
  Transmission Date: 20070707
  Serious: No
  Sender: FDA-Public Use
  Company Number: 2004UW06184

PATIENT
  Age: 34 Year
  Sex: Female

DRUGS (5)
  1. SEROQUEL [Suspect]
     Indication: AFFECTIVE DISORDER
     Dosage: ESCALATING DOSES ADMINISTERED
  2. SEROQUEL [Suspect]
     Indication: AFFECTIVE DISORDER
     Dosage: 450 MG DAILY PO
     Route: 048
  3. WELLBUTRIN [Concomitant]
  4. ADDERALL 10 [Concomitant]
  5. ALPRAZOLAM [Concomitant]

REACTIONS (1)
  - CONVULSION [None]
